FAERS Safety Report 15027894 (Version 1)
Quarter: 2018Q2

REPORT INFORMATION
  Report Type: Spontaneous
  Country: US (occurrence: US)
  Receive Date: 20180619
  Receipt Date: 20180619
  Transmission Date: 20180711
  Serious: Yes (Other)
  Sender: FDA-Public Use
  Company Number: US-TORRENT-00006248

PATIENT
  Age: 23 Year
  Sex: Female

DRUGS (2)
  1. FLUOXETINE [Suspect]
     Active Substance: FLUOXETINE HYDROCHLORIDE
     Indication: GENERALISED ANXIETY DISORDER
     Dosage: UNKNOWN
  2. DULOXETINE. [Suspect]
     Active Substance: DULOXETINE
     Indication: GENERALISED ANXIETY DISORDER
     Dosage: UNKNOWN

REACTIONS (3)
  - Off label use [Unknown]
  - Inappropriate antidiuretic hormone secretion [Recovered/Resolved]
  - Serotonin syndrome [Recovered/Resolved]
